FAERS Safety Report 16322936 (Version 1)
Quarter: 2019Q2

REPORT INFORMATION
  Report Type: Report from Study
  Country: IN (occurrence: IN)
  Receive Date: 20190516
  Receipt Date: 20190516
  Transmission Date: 20190711
  Serious: Yes (Other)
  Sender: FDA-Public Use
  Company Number: IN-UCBSA-2018025329

PATIENT
  Age: 14 Year
  Weight: 75 kg

DRUGS (2)
  1. BRIVARACETAM [Suspect]
     Active Substance: BRIVARACETAM
     Dosage: 2X/DAY (BID), 50 MG IN MORNING AND 100 MG IN NIGHT
     Route: 048
  2. BRIVARACETAM [Suspect]
     Active Substance: BRIVARACETAM
     Indication: EPILEPSY
     Dosage: 50 MG, 2X/DAY (BID)
     Route: 048

REACTIONS (8)
  - Behaviour disorder [Unknown]
  - Weight increased [Unknown]
  - Off label use [Unknown]
  - Aggression [Not Recovered/Not Resolved]
  - Mood swings [Not Recovered/Not Resolved]
  - Seizure [Unknown]
  - Alopecia [Unknown]
  - Drug ineffective [Unknown]
